FAERS Safety Report 6564803-X (Version None)
Quarter: 2010Q1

REPORT INFORMATION
  Report Type: 
  Country: None (occurrence: None)
  Receive Date: 20100201
  Receipt Date: 20100118
  Transmission Date: 20100710
  Serious: Yes (Hospitalization)
  Sender: FDA-Public Use
  Company Number: DE-PFIZER INC-2010006218

PATIENT
  Age: 65 Year
  Sex: Male

DRUGS (5)
  1. EDRONAX [Interacting]
     Dosage: UNK
  2. DOXEPIN HCL [Interacting]
     Dosage: UNK
  3. SIFROL [Suspect]
     Dosage: UNK
     Dates: start: 20080709, end: 20081014
  4. MADOPAR [Concomitant]
     Dosage: UNK
     Dates: start: 20080709
  5. CYMBALTA [Concomitant]
     Dosage: UNK

REACTIONS (2)
  - DRUG INTERACTION [None]
  - PATHOLOGICAL GAMBLING [None]
